FAERS Safety Report 12114314 (Version 1)
Quarter: 2016Q1

REPORT INFORMATION
  Report Type: Spontaneous
  Country: IT (occurrence: IT)
  Receive Date: 20160225
  Receipt Date: 20160225
  Transmission Date: 20160526
  Serious: Yes (Hospitalization)
  Sender: FDA-Public Use
  Company Number: IT-ACTAVIS-2016-03581

PATIENT
  Sex: Female

DRUGS (1)
  1. QUETIAPINA ACTAVIS [Suspect]
     Active Substance: QUETIAPINE
     Indication: DRUG ABUSE
     Dosage: 10 DF, SINGLE
     Route: 048

REACTIONS (2)
  - Drug administration error [Unknown]
  - Psychomotor hyperactivity [Unknown]
